FAERS Safety Report 10089178 (Version 1)
Quarter: 2014Q2

REPORT INFORMATION
  Report Type: Spontaneous
  Country: US (occurrence: None)
  Receive Date: 20140418
  Receipt Date: 20140418
  Transmission Date: 20141212
  Serious: No
  Sender: FDA-Public Use
  Company Number: None

PATIENT
  Age: 41 Year
  Sex: Female

DRUGS (2)
  1. BUPROPION SR 150 MG SANDOZ [Suspect]
     Indication: DEPRESSION
     Dosage: 1 PILL TWICE DAILY TAKEN BY MOUTH
     Route: 048
     Dates: start: 20140218, end: 20140416
  2. BUPROPION SR 150 MG SANDOZ [Suspect]
     Indication: ANXIETY
     Dosage: 1 PILL TWICE DAILY TAKEN BY MOUTH
     Route: 048
     Dates: start: 20140218, end: 20140416

REACTIONS (6)
  - Irritability [None]
  - Parosmia [None]
  - Acne [None]
  - Acne [None]
  - Alopecia [None]
  - Constipation [None]
